FAERS Safety Report 13401155 (Version 2)
Quarter: 2017Q2

REPORT INFORMATION
  Report Type: Spontaneous
  Country: US (occurrence: US)
  Receive Date: 20170404
  Receipt Date: 20170630
  Transmission Date: 20170830
  Serious: No
  Sender: FDA-Public Use
  Company Number: US-JNJFOC-20170321270

PATIENT
  Sex: Male
  Weight: 17.8 kg

DRUGS (2)
  1. CONCERTA [Suspect]
     Active Substance: METHYLPHENIDATE HYDROCHLORIDE
     Indication: PRODUCT USED FOR UNKNOWN INDICATION
     Route: 065
  2. NORDITROPIN [Concomitant]
     Active Substance: SOMATROPIN
     Indication: GROWTH FAILURE
     Dosage: BEFORE APR-2015
     Route: 065

REACTIONS (3)
  - Disturbance in social behaviour [Unknown]
  - Decreased appetite [Unknown]
  - Feeling abnormal [Unknown]
